FAERS Safety Report 5579213-1 (Version None)
Quarter: 2008Q1

REPORT INFORMATION
  Report Type: 
  Country: None (occurrence: None)
  Receive Date: 20080102
  Receipt Date: 20071221
  Transmission Date: 20080703
  Serious: Yes (Hospitalization)
  Sender: FDA-Public Use
  Company Number: B0501260A

PATIENT
  Age: 81 Year
  Sex: Female

DRUGS (5)
  1. BECLOJET [Suspect]
     Indication: DRUG USE FOR UNKNOWN INDICATION
     Route: 055
     Dates: end: 20060302
  2. STRONTIUM RANELATE [Suspect]
     Indication: DRUG USE FOR UNKNOWN INDICATION
     Route: 065
     Dates: start: 20060201
  3. ISOPTIN [Suspect]
     Indication: DRUG USE FOR UNKNOWN INDICATION
     Route: 065
     Dates: end: 20060302
  4. FOSAMAX [Concomitant]
  5. EVISTA [Concomitant]

REACTIONS (7)
  - BLOOD CREATININE INCREASED [None]
  - ERYTHEMA [None]
  - HEPATIC ENZYME INCREASED [None]
  - PHLEBITIS [None]
  - PYREXIA [None]
  - RASH MACULO-PAPULAR [None]
  - TOXIC SKIN ERUPTION [None]
